FAERS Safety Report 16070922 (Version 4)
Quarter: 2020Q1

REPORT INFORMATION
  Report Type: Report from Study
  Country: CO (occurrence: CO)
  Receive Date: 20190314
  Receipt Date: 20200327
  Transmission Date: 20200409
  Serious: Yes (Hospitalization, Other)
  Sender: FDA-Public Use
  Company Number: CO-ASTELLAS-2018US006779

PATIENT
  Age: 55 Year
  Sex: Female
  Weight: 59 kg

DRUGS (10)
  1. MYCOPHENOLATE [Concomitant]
     Active Substance: MYCOPHENOLIC ACID
     Indication: TRANSPLANT
     Route: 048
     Dates: start: 20171013
  2. TACROLIMUS. [Suspect]
     Active Substance: TACROLIMUS
     Dosage: 13 MG (2 CAPSULES OF 5MG AND 3 CAPSULES OF 1MG), ONCE DAILY
     Route: 048
     Dates: start: 201907, end: 20200317
  3. PRAZOSIN. [Concomitant]
     Active Substance: PRAZOSIN
     Indication: PRODUCT USED FOR UNKNOWN INDICATION
     Route: 048
  4. TACROLIMUS. [Suspect]
     Active Substance: TACROLIMUS
     Dosage: 10 MG (2 CAPSULES OF 5MG),ONCE DAILY
     Route: 048
     Dates: start: 20200318
  5. FOLIC ACID. [Concomitant]
     Active Substance: FOLIC ACID
     Indication: PRODUCT USED FOR UNKNOWN INDICATION
     Route: 048
  6. TACROLIMUS. [Suspect]
     Active Substance: TACROLIMUS
     Indication: RENAL TRANSPLANT
     Dosage: 9 MG (COMBINATION OF 5MG AND 1MG), ONCE DAILY
     Route: 048
     Dates: start: 20171013
  7. TACROLIMUS. [Suspect]
     Active Substance: TACROLIMUS
     Dosage: 12 MG (2 CAPSULES OF 5MG AND 2 CAPSULES OF 1MG), ONCE DAILY
     Route: 048
     Dates: end: 201907
  8. VERAPAMIL [Concomitant]
     Active Substance: VERAPAMIL HYDROCHLORIDE
     Indication: PRODUCT USED FOR UNKNOWN INDICATION
     Route: 048
  9. INSULIN [Concomitant]
     Active Substance: INSULIN NOS
     Indication: PRODUCT USED FOR UNKNOWN INDICATION
     Route: 058
  10. LOSARTAN. [Concomitant]
     Active Substance: LOSARTAN
     Indication: PRODUCT USED FOR UNKNOWN INDICATION
     Route: 048
     Dates: end: 20200318

REACTIONS (10)
  - Blood creatinine increased [Recovering/Resolving]
  - Pyelocaliectasis [Recovered/Resolved]
  - Diarrhoea [Recovered/Resolved]
  - Discomfort [Unknown]
  - Influenza [Recovered/Resolved]
  - Immunosuppressant drug level increased [Unknown]
  - Asthenia [Unknown]
  - Pneumonia [Recovering/Resolving]
  - Dizziness [Unknown]
  - Constipation [Unknown]

NARRATIVE: CASE EVENT DATE: 201712
